FAERS Safety Report 8490943-4 (Version None)
Quarter: 2012Q3

REPORT INFORMATION
  Report Type: 
  Country: None (occurrence: None)
  Receive Date: 20120706
  Receipt Date: 20120625
  Transmission Date: 20120928
  Serious: Yes (Other)
  Sender: FDA-Public Use
  Company Number: US-SANOFI-AVENTIS-2012SA045153

PATIENT
  Age: 71 Year
  Sex: Female
  Weight: 49.5 kg

DRUGS (5)
  1. PLAVIX [Suspect]
     Indication: SURGERY
     Route: 048
     Dates: start: 20111101
  2. PLAVIX [Suspect]
     Indication: STENT PLACEMENT
     Route: 048
     Dates: start: 20111101
  3. LISINOPRIL [Concomitant]
     Indication: BLOOD PRESSURE
  4. FUROSEMIDE [Suspect]
  5. FUROSEMIDE [Suspect]

REACTIONS (6)
  - CARDIAC FAILURE CONGESTIVE [None]
  - PARAESTHESIA [None]
  - WEIGHT DECREASED [None]
  - ABDOMINAL PAIN UPPER [None]
  - DIARRHOEA [None]
  - VOMITING [None]
